FAERS Safety Report 9283930 (Version 1)
Quarter: 2013Q2

REPORT INFORMATION
  Report Type: Spontaneous
  Country: FR (occurrence: FR)
  Receive Date: 20130510
  Receipt Date: 20130510
  Transmission Date: 20140414
  Serious: Yes (Hospitalization)
  Sender: FDA-Public Use
  Company Number: FR-ASTRAZENECA-2013SE31648

PATIENT
  Age: 26593 Day
  Sex: Female

DRUGS (1)
  1. HYTACAND [Suspect]
     Indication: HYPERTENSION
     Dosage: 1 DF DAILY
     Route: 048
     Dates: start: 20130305, end: 20130306

REACTIONS (2)
  - Hypochloraemia [Recovered/Resolved]
  - Hyponatraemia [Recovered/Resolved]
